FAERS Safety Report 7194302-6 (Version None)
Quarter: 2010Q4

REPORT INFORMATION
  Report Type: 
  Country: None (occurrence: None)
  Receive Date: 20101223
  Receipt Date: 20101108
  Transmission Date: 20110411
  Serious: No
  Sender: FDA-Public Use
  Company Number: US-BAUSCH-2010BL006362

PATIENT
  Age: 87 Year
  Sex: Female

DRUGS (4)
  1. ZIRGAN [Suspect]
     Indication: HERPES ZOSTER OPHTHALMIC
     Route: 047
     Dates: start: 20101106, end: 20101106
  2. GENTEAL [Concomitant]
     Indication: DRY EYE
     Route: 047
  3. SYSTANE [Concomitant]
     Indication: DRY EYE
     Route: 047
  4. XALATAN /SWE/ [Concomitant]
     Indication: GLAUCOMA
     Route: 047

REACTIONS (1)
  - VISION BLURRED [None]
